FAERS Safety Report 9622581 (Version 2)
Quarter: 2013Q4

REPORT INFORMATION
  Report Type: Spontaneous
  Country: US (occurrence: US)
  Receive Date: 20131015
  Receipt Date: 20131015
  Transmission Date: 20140711
  Serious: Yes (Hospitalization, Other)
  Sender: FDA-Public Use
  Company Number: US-NAPPMUNDI-USA-2012-0085739

PATIENT
  Sex: Female
  Weight: 56.69 kg

DRUGS (2)
  1. BUTRANS [Suspect]
     Indication: ANALGESIC THERAPY
     Dosage: 10 MCG/HR, UNK
     Dates: start: 20120329
  2. MIGRAINE MEDICINE WITH CODEINE [Concomitant]
     Indication: PRODUCT USED FOR UNKNOWN INDICATION

REACTIONS (3)
  - Mental status changes [Unknown]
  - Hallucination [Unknown]
  - Disorientation [Recovered/Resolved]
